FAERS Safety Report 18603372 (Version 2)
Quarter: 2021Q2

REPORT INFORMATION
  Report Type: Report from Study
  Country: US (occurrence: US)
  Receive Date: 20201210
  Receipt Date: 20210503
  Transmission Date: 20210717
  Serious: Yes (Other)
  Sender: FDA-Public Use
  Company Number: US-BAXTER-2020BAX024959

PATIENT
  Age: 9 Year
  Sex: Female
  Weight: 42.3 kg

DRUGS (6)
  1. TEMSIROLIMUS. [Suspect]
     Active Substance: TEMSIROLIMUS
     Dosage: DOSE REINTRODUCED
     Route: 042
  2. DACTINOMYCIN [Suspect]
     Active Substance: DACTINOMYCIN
     Indication: ALVEOLAR RHABDOMYOSARCOMA
     Dosage: OVER 1?5 MINUTES ON DAY 1. 1 CYCLE?21 DAYS, FIRST CYCLE
     Route: 042
     Dates: start: 20200330, end: 20200330
  3. TEMSIROLIMUS. [Suspect]
     Active Substance: TEMSIROLIMUS
     Indication: ALVEOLAR RHABDOMYOSARCOMA
     Dosage: OVER 30?60 MINUTES ON DAYS 1, 8, AND 15. 1 CYCLE?21 DAYS, FIRST CYCLE
     Route: 042
     Dates: start: 20180330
  4. VINCRISTINE SULFATE. [Suspect]
     Active Substance: VINCRISTINE SULFATE
     Indication: ALVEOLAR RHABDOMYOSARCOMA
     Dosage: OVER 1 MINUTE OR INFUSION VIA MINIBAG ON DAYS 1, 8, AND 15. 1 CYCLE?21 DAYS, FIRST CYCLE
     Route: 042
     Dates: start: 20180330
  5. CYCLOPHOSPHAMIDE FOR INJECTION, USP [Suspect]
     Active Substance: CYCLOPHOSPHAMIDE
     Indication: ALVEOLAR RHABDOMYOSARCOMA
     Dosage: 1200 MG/M2 IV OVER 60 MINUTES ON DAY 1 OF CYCLE 1. 1 CYCLE?21 DAYS, FIRST CYCLE
     Route: 042
     Dates: start: 20180330, end: 20180330
  6. TEMSIROLIMUS. [Suspect]
     Active Substance: TEMSIROLIMUS
     Dosage: LAST DOSE PRIOR TO AE. TOTAL DOSE ADMINISTERED 54 MG
     Route: 042
     Dates: start: 20180406, end: 20180406

REACTIONS (1)
  - Wound dehiscence [Recovered/Resolved]

NARRATIVE: CASE EVENT DATE: 20180403
